FAERS Safety Report 8024186-5 (Version None)
Quarter: 2012Q1

REPORT INFORMATION
  Report Type: 
  Country: None (occurrence: None)
  Receive Date: 20120105
  Receipt Date: 20111223
  Transmission Date: 20120608
  Serious: No
  Sender: FDA-Public Use
  Company Number: PHHY2011AU111952

PATIENT
  Sex: Female

DRUGS (2)
  1. FEMARA [Suspect]
     Dosage: UNK UKN, UNK
     Route: 048
     Dates: start: 20111201, end: 20111223
  2. FEMARA [Suspect]
     Indication: BREAST CANCER
     Dosage: UNK UKN, UNK
     Route: 048
     Dates: start: 20100101, end: 20111001

REACTIONS (8)
  - ARTHRITIS [None]
  - VULVOVAGINAL DRYNESS [None]
  - HEART RATE INCREASED [None]
  - FASCIITIS [None]
  - HOT FLUSH [None]
  - HYPERHIDROSIS [None]
  - ALOPECIA [None]
  - PRURITUS [None]
